FAERS Safety Report 18988069 (Version 1)
Quarter: 2021Q1

REPORT INFORMATION
  Report Type: Spontaneous
  Country: US (occurrence: US)
  Receive Date: 20210309
  Receipt Date: 20210309
  Transmission Date: 20210420
  Serious: No
  Sender: FDA-Public Use
  Company Number: US-TAKEDA-2021TUS014814

PATIENT
  Sex: Female
  Weight: 52.15 kg

DRUGS (16)
  1. ACETAMINOPHEN. [Concomitant]
     Active Substance: ACETAMINOPHEN
  2. PROAIR HFA [Concomitant]
     Active Substance: ALBUTEROL SULFATE
  3. MONTELUKAST [Concomitant]
     Active Substance: MONTELUKAST SODIUM
  4. EPINEPHRINE. [Concomitant]
     Active Substance: EPINEPHRINE
  5. ZYRTEC [LEVOCABASTINE HYDROCHLORIDE] [Concomitant]
     Active Substance: LEVOCABASTINE HYDROCHLORIDE
  6. SODIUM CHLORIDE. [Concomitant]
     Active Substance: SODIUM CHLORIDE
  7. MOTRIN [NAPROXEN] [Concomitant]
     Active Substance: NAPROXEN
  8. LIDOCAINE. [Concomitant]
     Active Substance: LIDOCAINE
  9. ALBUTEROL [SALBUTAMOL] [Concomitant]
     Active Substance: ALBUTEROL
  10. DIPHENHYDRAMINE. [Concomitant]
     Active Substance: DIPHENHYDRAMINE
  11. DULERA [Concomitant]
     Active Substance: FORMOTEROL FUMARATE DIHYDRATE\MOMETASONE FUROATE
  12. SPIRIVA [Concomitant]
     Active Substance: TIOTROPIUM BROMIDE MONOHYDRATE
  13. MUCINEX [Concomitant]
     Active Substance: GUAIFENESIN
  14. OMEPRAZOLE. [Concomitant]
     Active Substance: OMEPRAZOLE
  15. GAMMAGARD LIQUID [Suspect]
     Active Substance: HUMAN IMMUNOGLOBULIN G
     Indication: IMMUNODEFICIENCY COMMON VARIABLE
     Dosage: 35 GRAM, Q4WEEKS
     Route: 042
     Dates: start: 20180921
  16. PROBIOTIC ACIDOPHILUS [LACTOBACILLUS ACIDOPHILUS] [Concomitant]

REACTIONS (2)
  - Migraine [Unknown]
  - Infusion related reaction [Unknown]
